FAERS Safety Report 11690576 (Version 2)
Quarter: 2015Q4

REPORT INFORMATION
  Report Type: Spontaneous
  Country: US (occurrence: US)
  Receive Date: 20151102
  Receipt Date: 20151104
  Transmission Date: 20160304
  Serious: No
  Sender: FDA-Public Use
  Company Number: US-PFIZER INC-2015370656

PATIENT
  Sex: Female

DRUGS (2)
  1. SODIUM LAURYL SULPHATE [Suspect]
     Active Substance: SODIUM LAURYL SULFATE
     Dosage: UNK
  2. PREMARIN [Suspect]
     Active Substance: ESTROGENS, CONJUGATED
     Dosage: UNK

REACTIONS (3)
  - Vulvovaginal discomfort [Unknown]
  - Reaction to drug excipients [Unknown]
  - Therapeutic response unexpected [None]
